FAERS Safety Report 7367369-X (Version None)
Quarter: 2011Q1

REPORT INFORMATION
  Report Type: 
  Country: None (occurrence: None)
  Receive Date: 20110322
  Receipt Date: 20110315
  Transmission Date: 20110831
  Serious: Yes (Other)
  Sender: FDA-Public Use
  Company Number: GB-BRISTOL-MYERS SQUIBB COMPANY-15600364

PATIENT

DRUGS (2)
  1. IMATINIB MESYLATE [Suspect]
  2. SPRYCEL [Suspect]
     Dosage: STARTED 3 WEEKS BEFORE

REACTIONS (1)
  - BONE MARROW TRANSPLANT [None]
